FAERS Safety Report 10028635 (Version 1)
Quarter: 2014Q1

REPORT INFORMATION
  Report Type: Spontaneous
  Country: US (occurrence: US)
  Receive Date: 20140321
  Receipt Date: 20140321
  Transmission Date: 20141002
  Serious: Yes (Hospitalization)
  Sender: FDA-Public Use
  Company Number: US-GLAXOSMITHKLINE-A1066118A

PATIENT
  Sex: Female

DRUGS (3)
  1. TRIAMTERENE HCTZ [Suspect]
     Indication: PRODUCT USED FOR UNKNOWN INDICATION
     Route: 065
  2. MORPHINE [Concomitant]
  3. AMLODIPINE [Concomitant]

REACTIONS (3)
  - Cerebrovascular accident [Unknown]
  - Blood pressure increased [Unknown]
  - Pain [Unknown]
